FAERS Safety Report 19803119 (Version 1)
Quarter: 2021Q3

REPORT INFORMATION
  Report Type: Spontaneous
  Country: US (occurrence: US)
  Receive Date: 20210903
  Receipt Date: 20210903
  Transmission Date: 20211014
  Serious: No
  Sender: FDA-Public Use
  Company Number: None

PATIENT
  Age: 52 Year
  Sex: Female

DRUGS (1)
  1. GLATIRAMTER ACETATE (12X1ML) 40MG/ML MYLAN [Suspect]
     Active Substance: GLATIRAMER ACETATE
     Indication: MULTIPLE SCLEROSIS
     Route: 058
     Dates: start: 201807

REACTIONS (5)
  - Feeling hot [None]
  - Nonspecific reaction [None]
  - Choking [None]
  - Dysgeusia [None]
  - Flushing [None]

NARRATIVE: CASE EVENT DATE: 20210716
